FAERS Safety Report 8980767 (Version 5)
Quarter: 2013Q1

REPORT INFORMATION
  Report Type: Spontaneous
  Country: US (occurrence: US)
  Receive Date: 20121221
  Receipt Date: 20130116
  Transmission Date: 20140127
  Serious: Yes (Other)
  Sender: FDA-Public Use
  Company Number: US-PFIZER INC-2012321672

PATIENT
  Age: 12 Year
  Sex: Female
  Weight: 37 kg

DRUGS (2)
  1. GENOTROPIN [Suspect]
     Indication: GROWTH RETARDATION
     Dosage: 1.4 MG, DAILY
  2. GENOTROPIN [Suspect]
     Dosage: UNK

REACTIONS (2)
  - Langerhans^ cell histiocytosis [Not Recovered/Not Resolved]
  - Neoplasm recurrence [Not Recovered/Not Resolved]
